FAERS Safety Report 4883152-9 (Version None)
Quarter: 2006Q1

REPORT INFORMATION
  Report Type: 
  Country: None (occurrence: None)
  Receive Date: 20060117
  Receipt Date: 20060117
  Transmission Date: 20060701
  Serious: Yes (Other)
  Sender: FDA-Public Use
  Company Number: None

PATIENT
  Age: 73 Year
  Sex: Male
  Weight: 70.3075 kg

DRUGS (1)
  1. LEVAQUIN [Suspect]
     Indication: SINUSITIS
     Dosage: 500 MG.   ONCE PER DAY   PO
     Route: 048
     Dates: start: 20060109, end: 20060113

REACTIONS (2)
  - DIFFICULTY IN WALKING [None]
  - MYALGIA [None]
